FAERS Safety Report 11314521 (Version 3)
Quarter: 2015Q3

REPORT INFORMATION
  Report Type: Spontaneous
  Country: US (occurrence: US)
  Receive Date: 20150727
  Receipt Date: 20150929
  Transmission Date: 20151125
  Serious: No
  Sender: FDA-Public Use
  Company Number: US-PFIZER INC-2015248937

PATIENT
  Age: 36 Year
  Sex: Female
  Weight: 53.52 kg

DRUGS (1)
  1. ELELYSO [Suspect]
     Active Substance: TALIGLUCERASE ALFA
     Indication: LIPIDOSIS
     Dosage: 3200 IU, EVERY 2 WEEKS
     Route: 042
     Dates: start: 20150625, end: 20150722

REACTIONS (3)
  - Product use issue [Recovered/Resolved]
  - Arthralgia [Unknown]
  - Condition aggravated [Unknown]

NARRATIVE: CASE EVENT DATE: 20150625
